FAERS Safety Report 21515064 (Version 8)
Quarter: 2024Q2

REPORT INFORMATION
  Report Type: Spontaneous
  Country: US (occurrence: US)
  Receive Date: 20221027
  Receipt Date: 20240513
  Transmission Date: 20240716
  Serious: No
  Sender: FDA-Public Use
  Company Number: US-PFIZER INC-PV202200020865

PATIENT
  Age: 49 Year
  Sex: Female

DRUGS (1)
  1. IBRANCE [Suspect]
     Active Substance: PALBOCICLIB
     Dosage: TAKE 1 TABLET DAILY FOR 21 DAYS FOLLOWED BY 7 DAYS OFF ON A 28 DAY CYCLE
     Route: 048

REACTIONS (2)
  - Neoplasm progression [Unknown]
  - Amnesia [Unknown]

NARRATIVE: CASE EVENT DATE: 20220101
